FAERS Safety Report 10957867 (Version 2)
Quarter: 2015Q3

REPORT INFORMATION
  Report Type: Spontaneous
  Country: US (occurrence: US)
  Receive Date: 20150326
  Receipt Date: 20150806
  Transmission Date: 20151125
  Serious: No
  Sender: FDA-Public Use
  Company Number: US-ELI_LILLY_AND_COMPANY-US201503006769

PATIENT
  Age: 38 Year
  Sex: Male

DRUGS (2)
  1. FAMOTIDINE. [Concomitant]
     Active Substance: FAMOTIDINE
  2. FORTEO [Suspect]
     Active Substance: TERIPARATIDE
     Indication: OSTEOPOROSIS
     Dosage: 20 UG, QD
     Route: 065
     Dates: start: 20150318

REACTIONS (7)
  - Feeling abnormal [Recovering/Resolving]
  - Medication error [Unknown]
  - Somnolence [Recovering/Resolving]
  - Injection site erythema [Not Recovered/Not Resolved]
  - Dizziness [Recovering/Resolving]
  - Pruritus [Recovering/Resolving]
  - Feeling hot [Recovering/Resolving]

NARRATIVE: CASE EVENT DATE: 20150318
